FAERS Safety Report 13269766 (Version 1)
Quarter: 2017Q1

REPORT INFORMATION
  Report Type: Spontaneous
  Country: IT (occurrence: IT)
  Receive Date: 20170224
  Receipt Date: 20170224
  Transmission Date: 20170428
  Serious: Yes (Life-Threatening, Hospitalization, Other)
  Sender: FDA-Public Use
  Company Number: IT-BRISTOL-MYERS SQUIBB COMPANY-BMS-2017-014391

PATIENT
  Age: 76 Year
  Sex: Female
  Weight: 60 kg

DRUGS (1)
  1. APIXABAN [Suspect]
     Active Substance: APIXABAN
     Indication: CEREBROVASCULAR ACCIDENT PROPHYLAXIS
     Dosage: UNK
     Route: 048
     Dates: start: 20150101, end: 20170216

REACTIONS (4)
  - Bronchitis [Unknown]
  - Cerebral haemorrhage [Not Recovered/Not Resolved]
  - Craniotomy [Unknown]
  - Haematoma evacuation [Unknown]

NARRATIVE: CASE EVENT DATE: 20170216
